FAERS Safety Report 5358602-4 (Version None)
Quarter: 2007Q2

REPORT INFORMATION
  Report Type: 
  Country: None (occurrence: None)
  Receive Date: 20070614
  Receipt Date: 20070614
  Transmission Date: 20071010
  Serious: Yes (Other)
  Sender: FDA-Public Use
  Company Number: None

PATIENT
  Age: 37 Year
  Sex: Female
  Weight: 50.8029 kg

DRUGS (1)
  1. LEVAQUIN [Suspect]
     Indication: LYMPHADENOPATHY
     Dosage: 750MG  1 / DAY  7 DAYS PO;  1 BAG 3 TIMES  IV DRIP
     Route: 048
     Dates: start: 20060727, end: 20060803

REACTIONS (7)
  - MEMORY IMPAIRMENT [None]
  - MOTOR DYSFUNCTION [None]
  - MUSCULOSKELETAL STIFFNESS [None]
  - TENDON DISORDER [None]
  - TENDON PAIN [None]
  - THINKING ABNORMAL [None]
  - VISUAL DISTURBANCE [None]
